FAERS Safety Report 19139502 (Version 1)
Quarter: 2021Q2

REPORT INFORMATION
  Report Type: Spontaneous
  Country: GB (occurrence: GB)
  Receive Date: 20210415
  Receipt Date: 20210415
  Transmission Date: 20210717
  Serious: Yes (Other)
  Sender: FDA-Public Use
  Company Number: GB-PFIZER INC-2021367145

PATIENT
  Age: 41 Year
  Sex: Female
  Weight: 63.5 kg

DRUGS (4)
  1. BENZOYL PEROXIDE. [Concomitant]
     Active Substance: BENZOYL PEROXIDE
     Indication: ILL-DEFINED DISORDER
  2. DERMOVATE [Concomitant]
     Active Substance: CLOBETASOL
     Indication: ILL-DEFINED DISORDER
  3. SPIRONOLACTONE. [Suspect]
     Active Substance: SPIRONOLACTONE
     Indication: ACNE
     Dosage: 100 MG
     Route: 048
     Dates: start: 20210315, end: 20210324
  4. HYDROCORTISONE. [Concomitant]
     Active Substance: HYDROCORTISONE
     Indication: ILL-DEFINED DISORDER

REACTIONS (2)
  - Oral pain [Recovered/Resolved with Sequelae]
  - Rash [Recovering/Resolving]

NARRATIVE: CASE EVENT DATE: 20210324
